FAERS Safety Report 10651965 (Version 5)
Quarter: 2018Q3

REPORT INFORMATION
  Report Type: Report from Study
  Country: US (occurrence: US)
  Receive Date: 20141215
  Receipt Date: 20180705
  Transmission Date: 20181010
  Serious: Yes (Hospitalization, Disabling, Other)
  Sender: FDA-Public Use
  Company Number: US-SA-2014SA025396

PATIENT
  Age: 64 Year
  Sex: Male

DRUGS (5)
  1. TERIFLUNOMIDE [Suspect]
     Active Substance: TERIFLUNOMIDE
     Dosage: 14 MG,QD
     Route: 048
     Dates: start: 20180401
  2. TERIFLUNOMIDE [Suspect]
     Active Substance: TERIFLUNOMIDE
     Dosage: 14 MG,QD
     Route: 048
     Dates: start: 20130820, end: 20170401
  3. OCREVUS [Concomitant]
     Active Substance: OCRELIZUMAB
     Dosage: UNK UNK,UNK
     Route: 065
  4. TERIFLUNOMIDE [Suspect]
     Active Substance: TERIFLUNOMIDE
     Indication: MULTIPLE SCLEROSIS
     Dosage: 14 MG,QD
     Route: 048
     Dates: start: 2008
  5. TERIFLUNOMIDE [Suspect]
     Active Substance: TERIFLUNOMIDE
     Dosage: 14 MG,QD
     Route: 048
     Dates: start: 20180404

REACTIONS (26)
  - Fall [Recovered/Resolved]
  - Hip fracture [Recovering/Resolving]
  - Condition aggravated [Recovered/Resolved]
  - Contusion [Recovered/Resolved]
  - Nephrolithiasis [Recovered/Resolved]
  - Nuclear magnetic resonance imaging abnormal [Not Recovered/Not Resolved]
  - Alopecia [Not Recovered/Not Resolved]
  - Drug dose omission [Unknown]
  - Gait disturbance [Recovered/Resolved]
  - Tooth abscess [Recovered/Resolved]
  - Brain stem stroke [Unknown]
  - Erectile dysfunction [Unknown]
  - Movement disorder [Recovered/Resolved]
  - Dysarthria [Recovered/Resolved]
  - Multiple sclerosis relapse [Not Recovered/Not Resolved]
  - Migraine [Unknown]
  - Grip strength decreased [Recovered/Resolved]
  - Headache [Not Recovered/Not Resolved]
  - Feeling abnormal [Not Recovered/Not Resolved]
  - Muscle spasticity [Recovered/Resolved]
  - Eye disorder [Not Recovered/Not Resolved]
  - Pain [Recovered/Resolved]
  - Blood glucose increased [Recovered/Resolved]
  - Transient ischaemic attack [Recovered/Resolved]
  - Dysphagia [Not Recovered/Not Resolved]
  - Product use issue [Unknown]

NARRATIVE: CASE EVENT DATE: 201411
